FAERS Safety Report 21088498 (Version 2)
Quarter: 2022Q4

REPORT INFORMATION
  Report Type: Spontaneous
  Country: JP (occurrence: JP)
  Receive Date: 20220715
  Receipt Date: 20221026
  Transmission Date: 20230112
  Serious: Yes (Hospitalization)
  Sender: FDA-Public Use
  Company Number: JP-ELI_LILLY_AND_COMPANY-JP202207006149

PATIENT
  Age: 71 Year
  Sex: Female

DRUGS (4)
  1. DULOXETINE HYDROCHLORIDE [Suspect]
     Active Substance: DULOXETINE HYDROCHLORIDE
     Indication: Depression
     Dosage: 20 MG, DAILY
     Route: 048
  2. DULOXETINE HYDROCHLORIDE [Suspect]
     Active Substance: DULOXETINE HYDROCHLORIDE
     Indication: Piriformis syndrome
     Dosage: 40 UNK
     Route: 048
  3. PREGABALIN [Concomitant]
     Active Substance: PREGABALIN
     Dosage: 150 MG, DAILY
  4. CELECOXIB [Concomitant]
     Active Substance: CELECOXIB
     Dosage: 100 MG, DAILY

REACTIONS (3)
  - Depression [Recovering/Resolving]
  - Suicide attempt [Unknown]
  - Inappropriate antidiuretic hormone secretion [Recovered/Resolved]
